FAERS Safety Report 6725120-8 (Version None)
Quarter: 2010Q2

REPORT INFORMATION
  Report Type: 
  Country: None (occurrence: None)
  Receive Date: 20100514
  Receipt Date: 20100430
  Transmission Date: 20101027
  Serious: Yes (Hospitalization)
  Sender: FDA-Public Use
  Company Number: TR-RANBAXY-2010RR-33649

PATIENT
  Age: 16 Year
  Sex: Female

DRUGS (2)
  1. PARACETAMOL [Suspect]
     Indication: SUICIDE ATTEMPT
     Dosage: 8 G, UNK
     Route: 048
  2. AMOXICILLIN [Concomitant]
     Indication: SUICIDE ATTEMPT
     Dosage: 3.5 G, UNK
     Route: 048

REACTIONS (3)
  - ABDOMINAL PAIN [None]
  - INTENTIONAL OVERDOSE [None]
  - NAUSEA [None]
